FAERS Safety Report 7273008-9 (Version None)
Quarter: 2011Q1

REPORT INFORMATION
  Report Type: 
  Country: None (occurrence: None)
  Receive Date: 20110203
  Receipt Date: 20110126
  Transmission Date: 20110831
  Serious: Yes (Hospitalization)
  Sender: FDA-Public Use
  Company Number: B0668737A

PATIENT
  Sex: Male

DRUGS (6)
  1. FERRUM [Suspect]
     Route: 048
     Dates: start: 20100607, end: 20100722
  2. PRAVASTATIN [Concomitant]
     Dosage: 10MG PER DAY
     Route: 048
  3. DIOVAN [Concomitant]
     Indication: HYPERTENSION
     Dosage: 80MG PER DAY
     Route: 048
     Dates: start: 20050316
  4. LANSOPRAZOLE [Concomitant]
     Indication: GASTRITIS
     Dosage: 15MG PER DAY
     Route: 048
  5. OMACOR [Suspect]
     Dosage: 2000MG PER DAY
     Route: 048
     Dates: start: 20100607, end: 20100722
  6. NIFEDIPINE [Concomitant]
     Indication: HYPERTENSION
     Dosage: 40MG PER DAY
     Route: 048

REACTIONS (5)
  - SPLENOMEGALY [None]
  - ANAEMIA [None]
  - MYELOFIBROSIS [None]
  - PYREXIA [None]
  - ABDOMINAL PAIN [None]
